FAERS Safety Report 6097262-4 (Version None)
Quarter: 2009Q1

REPORT INFORMATION
  Report Type: 
  Country: None (occurrence: None)
  Receive Date: 20090226
  Receipt Date: 20090226
  Transmission Date: 20090719
  Serious: No
  Sender: FDA-Public Use
  Company Number: None

PATIENT
  Age: 82 Year
  Sex: Female
  Weight: 61.2356 kg

DRUGS (1)
  1. RECLAST [Suspect]
     Indication: OSTEOPENIA
     Dates: start: 20080911, end: 20080911

REACTIONS (5)
  - ABASIA [None]
  - BEDRIDDEN [None]
  - INJURY [None]
  - MUSCULOSKELETAL STIFFNESS [None]
  - PAIN [None]
